FAERS Safety Report 20533472 (Version 4)
Quarter: 2022Q1

REPORT INFORMATION
  Report Type: Spontaneous
  Country: US (occurrence: US)
  Receive Date: 20220301
  Receipt Date: 20220318
  Transmission Date: 20220423
  Serious: Yes (Hospitalization, Other)
  Sender: FDA-Public Use
  Company Number: US-GILEAD-2022-0571352

PATIENT
  Age: 79 Year
  Sex: Male

DRUGS (18)
  1. EPCLUSA [Suspect]
     Active Substance: SOFOSBUVIR\VELPATASVIR
     Indication: Chronic hepatitis C
     Dosage: 1 DOSAGE FORM, QD
     Route: 048
  2. CANDESARTAN CILEXETIL [Concomitant]
     Active Substance: CANDESARTAN CILEXETIL
  3. CARVEDILOL [Concomitant]
     Active Substance: CARVEDILOL
  4. CILOSTAZOL [Concomitant]
     Active Substance: CILOSTAZOL
  5. FERROUS SULFATE [Concomitant]
     Active Substance: FERROUS SULFATE
  6. LYRICA [Concomitant]
     Active Substance: PREGABALIN
  7. MYRBETRIQ [Concomitant]
     Active Substance: MIRABEGRON
  8. TRAMADOL HCL [Concomitant]
     Active Substance: TRAMADOL HYDROCHLORIDE
  9. AMIODARONE HYDROCHLORIDE [Concomitant]
     Active Substance: AMIODARONE HYDROCHLORIDE
  10. ELIQUIS [Concomitant]
     Active Substance: APIXABAN
  11. NIFEDIPINE [Concomitant]
     Active Substance: NIFEDIPINE
  12. PLAVIX [Concomitant]
     Active Substance: CLOPIDOGREL BISULFATE
  13. LIPITOR [Concomitant]
     Active Substance: ATORVASTATIN CALCIUM
  14. ALDACTONE [Concomitant]
     Active Substance: SPIRONOLACTONE
  15. LASIX [Concomitant]
     Active Substance: FUROSEMIDE
  16. OMEPRAZOLE [Concomitant]
     Active Substance: OMEPRAZOLE
  17. ASPIRIN [Concomitant]
     Active Substance: ASPIRIN
  18. ALDACTONE [Concomitant]
     Active Substance: SPIRONOLACTONE

REACTIONS (5)
  - Chest discomfort [Recovered/Resolved]
  - Cardiac failure congestive [Unknown]
  - Dyspnoea [Recovered/Resolved]
  - Intentional dose omission [Recovered/Resolved]
  - Potentiating drug interaction [Unknown]

NARRATIVE: CASE EVENT DATE: 20220131
